FAERS Safety Report 6297595-2 (Version None)
Quarter: 2009Q3

REPORT INFORMATION
  Report Type: 
  Country: None (occurrence: None)
  Receive Date: 20090805
  Receipt Date: 20090724
  Transmission Date: 20100115
  Serious: Yes (Hospitalization, Other)
  Sender: FDA-Public Use
  Company Number: PHHO2009JP07584

PATIENT
  Sex: Female
  Weight: 53 kg

DRUGS (14)
  1. EXELON [Suspect]
     Indication: DEMENTIA ALZHEIMER'S TYPE
     Dosage: 2.5CM^2 (4.5MG)
     Route: 062
     Dates: start: 20090107, end: 20090203
  2. EXELON [Suspect]
     Dosage: 5CM^2 (9.0MG)
     Route: 062
     Dates: start: 20090204, end: 20090310
  3. EXELON [Suspect]
     Dosage: 7.5CM^2 (13.5MG)
     Route: 062
     Dates: start: 20090311, end: 20090331
  4. EXELON [Suspect]
     Dosage: 10CM^2 (18MG)
     Route: 062
     Dates: start: 20090401, end: 20090529
  5. EXELON [Suspect]
     Dosage: NO TREATMENT
     Route: 062
     Dates: start: 20090530, end: 20090531
  6. EXELON [Suspect]
     Dosage: 10CM^2 (18MG)
     Route: 062
     Dates: start: 20090601, end: 20090623
  7. CYANOCOBALAMIN [Concomitant]
     Indication: NEUROPATHY PERIPHERAL
     Dosage: UNK
  8. JUVELA [Concomitant]
     Indication: PERIPHERAL VASCULAR DISORDER
     Dosage: UNK
  9. MEILAX [Concomitant]
     Indication: ANXIETY DISORDER
     Dosage: UNK
  10. DIOVAN [Concomitant]
     Indication: HYPERTENSION
     Dosage: UNK
  11. DEPAKENE [Concomitant]
     Indication: PSYCHOMOTOR SEIZURES
     Dosage: UNK
  12. RIVOTRIL [Concomitant]
     Indication: PSYCHOMOTOR SEIZURES
     Dosage: UNK
  13. AMOBAN [Concomitant]
     Indication: INSOMNIA
     Dosage: UNK
  14. LULLAN [Concomitant]
     Indication: PSYCHOMOTOR SEIZURES
     Dosage: UNK

REACTIONS (12)
  - ARTHROPATHY [None]
  - CARDIOVASCULAR DISORDER [None]
  - DECREASED APPETITE [None]
  - DYSKINESIA [None]
  - GAIT DISTURBANCE [None]
  - HYPOAESTHESIA [None]
  - HYPOKINESIA [None]
  - LIMB DISCOMFORT [None]
  - OEDEMA PERIPHERAL [None]
  - VENA CAVA FILTER INSERTION [None]
  - VENOUS THROMBOSIS LIMB [None]
  - WEIGHT DECREASED [None]
